FAERS Safety Report 7749773-0 (Version None)
Quarter: 2011Q3

REPORT INFORMATION
  Report Type: 
  Country: None (occurrence: None)
  Receive Date: 20110914
  Receipt Date: 20110908
  Transmission Date: 20111222
  Serious: Yes (Other)
  Sender: FDA-Public Use
  Company Number: CA-BRISTOL-MYERS SQUIBB COMPANY-16050940

PATIENT
  Age: 50 Year
  Sex: Male

DRUGS (2)
  1. NORTRIPTYLINE HCL [Concomitant]
  2. ABILIFY [Suspect]

REACTIONS (2)
  - INSOMNIA [None]
  - MANIA [None]
